FAERS Safety Report 8386280-9 (Version None)
Quarter: 2012Q2

REPORT INFORMATION
  Report Type: 
  Country: None (occurrence: None)
  Receive Date: 20120525
  Receipt Date: 20120516
  Transmission Date: 20120825
  Serious: Yes (Hospitalization)
  Sender: FDA-Public Use
  Company Number: KR-UCBSA-055230

PATIENT
  Age: 65 Year
  Sex: Female
  Weight: 55.5 kg

DRUGS (2)
  1. CHEMOTHERAPY [Concomitant]
     Dosage: UNKNOWN DOSE
     Dates: start: 20120428, end: 20120430
  2. CIMZIA [Suspect]
     Route: 058
     Dates: start: 20100707, end: 20120410

REACTIONS (2)
  - LUNG NEOPLASM MALIGNANT [None]
  - LEUKOPENIA [None]
